FAERS Safety Report 9264811 (Version 1)
Quarter: 2013Q2

REPORT INFORMATION
  Report Type: Spontaneous
  Country: DK (occurrence: None)
  Receive Date: 20130429
  Receipt Date: 20130429
  Transmission Date: 20140414
  Serious: Yes (Disabling)
  Sender: FDA-Public Use
  Company Number: AUR-APL-2010-01581

PATIENT
  Age: 62 Year
  Sex: Male

DRUGS (3)
  1. SIMVASTATIN (SIMVASTATIN) [Suspect]
     Indication: HYPERTRIGLYCERIDAEMIA
     Dates: start: 20080310, end: 20090916
  2. ORABET (METFORMIN HYDROCHLORIDE) [Concomitant]
  3. TAFIL (ALPRAZOLAM) [Concomitant]

REACTIONS (12)
  - Alanine aminotransferase increased [None]
  - Blood creatine phosphokinase increased [None]
  - Feeling hot [None]
  - Pruritus generalised [None]
  - Malaise [None]
  - Myalgia [None]
  - Myopathy [None]
  - Muscle atrophy [None]
  - Weight decreased [None]
  - Decreased immune responsiveness [None]
  - Pyrexia [None]
  - Nausea [None]
